FAERS Safety Report 23604407 (Version 1)
Quarter: 2024Q1

REPORT INFORMATION
  Report Type: Other
  Country: MX (occurrence: None)
  Receive Date: 20240307
  Receipt Date: 20240307
  Transmission Date: 20240410
  Serious: Yes (Hospitalization, Other)
  Sender: FDA-Public Use
  Company Number: MX-ROCHE-3517766

PATIENT
  Age: 0 Year
  Sex: Female
  Weight: 13.5 kg

DRUGS (10)
  1. PULMOZYME [Suspect]
     Active Substance: DORNASE ALFA
     Indication: Cystic fibrosis
     Route: 055
     Dates: start: 201904
  2. ALBUTEROL [Concomitant]
     Active Substance: ALBUTEROL
     Indication: Cystic fibrosis
  3. HYPERTONIC SOLUTIONS [Concomitant]
     Indication: Cystic fibrosis
     Dosage: NEBULIZE 0.5 ML + 3 ML OF 0.9% SALINE SOLUTION (AFTER NEBULIZATION WITH SALBUTAMOL)
  4. TOBRAMYCIN [Concomitant]
     Active Substance: TOBRAMYCIN
     Indication: Cystic fibrosis
     Dosage: DOSE AND FREQUENCY WERE NOT REPORTED
  5. UNSPECIFIED INGREDIENT [Concomitant]
     Active Substance: UNSPECIFIED INGREDIENT
     Dosage: 2 CAPSULES EVERY MEAL
  6. VITAMIN A [Concomitant]
     Active Substance: VITAMIN A
  7. VITAMIN C [Concomitant]
     Active Substance: ASCORBIC ACID
  8. ERGOCALCIFEROL [Concomitant]
     Active Substance: ERGOCALCIFEROL
  9. VITAMIN E [Concomitant]
     Active Substance: .ALPHA.-TOCOPHEROL
     Dosage: 1 CAPSULE
  10. ZINC [Concomitant]
     Active Substance: PYRITHIONE ZINC\ZINC\ZINC CHLORIDE
     Route: 048

REACTIONS (11)
  - Off label use [Unknown]
  - Anastomotic complication [Unknown]
  - Dehydration [Unknown]
  - Pneumonia [Unknown]
  - Infective pulmonary exacerbation of cystic fibrosis [Unknown]
  - Cystic fibrosis [Unknown]
  - Pseudomonas test positive [Unknown]
  - Pseudomonas test positive [Unknown]
  - Weight increased [Unknown]
  - Increased bronchial secretion [Unknown]
  - Vomiting [Unknown]

NARRATIVE: CASE EVENT DATE: 20190401
